FAERS Safety Report 4404343-7 (Version None)
Quarter: 2004Q3

REPORT INFORMATION
  Report Type: 
  Country: None (occurrence: None)
  Receive Date: 20040721
  Receipt Date: 20040721
  Transmission Date: 20050211
  Serious: Yes (Life-Threatening)
  Sender: FDA-Public Use
  Company Number: None

PATIENT
  Sex: Male

DRUGS (12)
  1. CITALOPRAM [Suspect]
     Indication: DISEASE RECURRENCE
     Dosage: 20 QD -DECREASED TO 10 QD
     Dates: start: 20031202, end: 20031229
  2. CITALOPRAM [Suspect]
     Indication: MAJOR DEPRESSION
     Dosage: 20 QD -DECREASED TO 10 QD
     Dates: start: 20031202, end: 20031229
  3. CITALOPRAM [Suspect]
     Indication: POST-TRAUMATIC STRESS DISORDER
     Dosage: 20 QD -DECREASED TO 10 QD
     Dates: start: 20031202, end: 20031229
  4. CITALOPRAM [Suspect]
     Indication: DISEASE RECURRENCE
     Dosage: 20 QD -DECREASED TO 10 QD
     Dates: start: 20031229, end: 20040129
  5. CITALOPRAM [Suspect]
     Indication: MAJOR DEPRESSION
     Dosage: 20 QD -DECREASED TO 10 QD
     Dates: start: 20031229, end: 20040129
  6. CITALOPRAM [Suspect]
     Indication: POST-TRAUMATIC STRESS DISORDER
     Dosage: 20 QD -DECREASED TO 10 QD
     Dates: start: 20031229, end: 20040129
  7. ALPRAZOLAM [Concomitant]
  8. PREDNISONE [Concomitant]
  9. LORATODINE [Concomitant]
  10. LEVOTHROXINE [Concomitant]
  11. SIMVASTATIN [Concomitant]
  12. IBUPROFEN [Concomitant]

REACTIONS (2)
  - SEROTONIN SYNDROME [None]
  - VOMITING [None]
